FAERS Safety Report 20690880 (Version 1)
Quarter: 2022Q2

REPORT INFORMATION
  Report Type: Spontaneous
  Country: AT (occurrence: AT)
  Receive Date: 20220408
  Receipt Date: 20220408
  Transmission Date: 20220721
  Serious: Yes (Death, Other)
  Sender: FDA-Public Use
  Company Number: None

PATIENT
  Age: 60 Year
  Sex: Female
  Weight: 52 kg

DRUGS (3)
  1. OPDIVO [Suspect]
     Active Substance: NIVOLUMAB
     Indication: Gastrointestinal stromal tumour
     Dosage: 1. GABE; 8. LINIE
     Route: 065
     Dates: start: 20220119, end: 20220119
  2. OPDIVO [Suspect]
     Active Substance: NIVOLUMAB
     Dosage: 2. GABE;8. LINIE
     Route: 065
     Dates: start: 20220202, end: 20220202
  3. NIVOLUMAB\RELATLIMAB-RMBW [Suspect]
     Active Substance: NIVOLUMAB\RELATLIMAB-RMBW
     Dosage: 2. GABE;8. LINIE FREQUENCY: 1, FREQUENCY UNIT: 809
     Route: 065
     Dates: start: 20220202, end: 20220202

REACTIONS (5)
  - Toxic epidermal necrolysis [Fatal]
  - Pemphigus [Fatal]
  - Stevens-Johnson syndrome [Fatal]
  - Autoimmune dermatitis [Fatal]
  - Intentional product use issue [Unknown]

NARRATIVE: CASE EVENT DATE: 20220316
